FAERS Safety Report 10098011 (Version 2)
Quarter: 2014Q2

REPORT INFORMATION
  Report Type: Report from Study
  Country: CN (occurrence: CN)
  Receive Date: 20140423
  Receipt Date: 20140430
  Transmission Date: 20141212
  Serious: No
  Sender: FDA-Public Use
  Company Number: CN-ROCHE-1384102

PATIENT
  Age: 28 Year
  Sex: Male
  Weight: 63 kg

DRUGS (38)
  1. PEG-INTERFERON ALFA 2A [Suspect]
     Indication: CHRONIC HEPATITIS C
     Route: 058
     Dates: start: 20130121, end: 20130401
  2. PEG-INTERFERON ALFA 2A [Suspect]
     Route: 058
     Dates: start: 20130415, end: 20130513
  3. PEG-INTERFERON ALFA 2A [Suspect]
     Route: 058
     Dates: start: 20130521, end: 20130702
  4. PEG-INTERFERON ALFA 2A [Suspect]
     Route: 058
     Dates: start: 20130715, end: 20130730
  5. PEG-INTERFERON ALFA 2A [Suspect]
     Route: 058
     Dates: start: 20130813, end: 20130813
  6. RIBAVIRIN [Suspect]
     Indication: CHRONIC HEPATITIS C
     Dosage: DIVIDED INTO TWO ORAL DAILY DOSES
     Route: 048
     Dates: start: 20130121, end: 20130121
  7. RIBAVIRIN [Suspect]
     Route: 048
     Dates: start: 20130122, end: 20130203
  8. RIBAVIRIN [Suspect]
     Route: 048
     Dates: start: 20130122, end: 20130203
  9. RIBAVIRIN [Suspect]
     Dosage: 3 CASULES, QAM: 2 CAPSULE, QPM
     Route: 048
     Dates: start: 20130204, end: 20130502
  10. RIBAVIRIN [Suspect]
     Dosage: 2 CASULES, QAM: 1 CAPSULE, QPM
     Route: 048
     Dates: start: 20130503, end: 20130512
  11. RIBAVIRIN [Suspect]
     Route: 048
     Dates: start: 20130513, end: 20130520
  12. RIBAVIRIN [Suspect]
     Route: 048
     Dates: start: 20130521, end: 20130602
  13. RIBAVIRIN [Suspect]
     Route: 048
     Dates: start: 20130603, end: 20130804
  14. RIBAVIRIN [Suspect]
     Route: 048
     Dates: start: 20130712, end: 20130804
  15. RIBAVIRIN [Suspect]
     Route: 048
     Dates: start: 20130813, end: 20130818
  16. RIBAVIRIN [Suspect]
     Route: 048
     Dates: start: 20130814, end: 20130818
  17. RIBAVIRIN [Suspect]
     Route: 048
     Dates: start: 20130513, end: 20130709
  18. BOCEPREVIR [Suspect]
     Indication: CHRONIC HEPATITIS C
     Route: 048
  19. BOCEPREVIR [Suspect]
     Route: 048
     Dates: start: 20130304, end: 20130317
  20. BOCEPREVIR [Suspect]
     Route: 048
     Dates: start: 20130304, end: 20130318
  21. BOCEPREVIR [Suspect]
     Route: 048
     Dates: start: 20130304, end: 20130413
  22. BOCEPREVIR [Suspect]
     Route: 048
     Dates: start: 20130319, end: 20130525
  23. BOCEPREVIR [Suspect]
     Route: 048
     Dates: start: 20130320, end: 20130412
  24. BOCEPREVIR [Suspect]
     Route: 048
     Dates: start: 20130414, end: 20130419
  25. BOCEPREVIR [Suspect]
     Route: 048
     Dates: start: 20130415, end: 20130601
  26. BOCEPREVIR [Suspect]
     Route: 048
     Dates: start: 20130519, end: 20130525
  27. BOCEPREVIR [Suspect]
     Route: 048
     Dates: start: 20130527, end: 20130805
  28. BOCEPREVIR [Suspect]
     Route: 048
     Dates: start: 20130527, end: 20130607
  29. BOCEPREVIR [Suspect]
     Route: 048
     Dates: start: 20130603, end: 20130608
  30. BOCEPREVIR [Suspect]
     Route: 048
     Dates: start: 20130609, end: 20130630
  31. BOCEPREVIR [Suspect]
     Route: 048
     Dates: start: 20130610, end: 20130625
  32. BOCEPREVIR [Suspect]
     Route: 048
     Dates: start: 20130627, end: 20130709
  33. BOCEPREVIR [Suspect]
     Route: 048
     Dates: start: 20130702, end: 20130726
  34. BOCEPREVIR [Suspect]
     Route: 048
     Dates: start: 20130712, end: 20130727
  35. BOCEPREVIR [Suspect]
     Route: 048
     Dates: start: 20130728, end: 20130805
  36. BOCEPREVIR [Suspect]
     Route: 048
     Dates: start: 20130729, end: 20130805
  37. BOCEPREVIR [Suspect]
     Route: 048
     Dates: start: 20130813, end: 20130818
  38. BOCEPREVIR [Suspect]
     Dosage: MORNING AND AFTERNOON
     Route: 048
     Dates: start: 20130814, end: 20130818

REACTIONS (1)
  - VIIth nerve paralysis [Recovered/Resolved]
